FAERS Safety Report 17118009 (Version 2)
Quarter: 2019Q4

REPORT INFORMATION
  Report Type: Spontaneous
  Country: US (occurrence: US)
  Receive Date: 20191205
  Receipt Date: 20191209
  Transmission Date: 20200122
  Serious: Yes (Other)
  Sender: FDA-Public Use
  Company Number: US-SA-2019SA336860

PATIENT
  Age: 42 Year
  Sex: Male

DRUGS (3)
  1. LANTUS SOLOSTAR [Suspect]
     Active Substance: INSULIN GLARGINE
     Dosage: 30 U, QD
     Route: 065
  2. LANTUS SOLOSTAR [Suspect]
     Active Substance: INSULIN GLARGINE
     Dosage: 60 U, QD
     Route: 065
  3. LANTUS SOLOSTAR [Suspect]
     Active Substance: INSULIN GLARGINE
     Dosage: 50 U, QD
     Route: 065

REACTIONS (5)
  - Blood glucose abnormal [Unknown]
  - Device defective [Unknown]
  - Glycosylated haemoglobin increased [Unknown]
  - Incorrect dose administered by product [Unknown]
  - Diabetes mellitus inadequate control [Unknown]
